FAERS Safety Report 13242760 (Version 1)
Quarter: 2017Q1

REPORT INFORMATION
  Report Type: Spontaneous
  Country: TW (occurrence: TW)
  Receive Date: 20170216
  Receipt Date: 20170216
  Transmission Date: 20170428
  Serious: Yes (Other)
  Sender: FDA-Public Use
  Company Number: TW-MYLANLABS-2017M1009428

PATIENT

DRUGS (1)
  1. KETAMINE [Suspect]
     Active Substance: KETAMINE
     Indication: DRUG ABUSE
     Dosage: 5MG DAILY FOR 1 YEAR
     Route: 065

REACTIONS (3)
  - Pneumonia klebsiella [Recovered/Resolved]
  - Cystitis [Recovered/Resolved]
  - Drug abuse [Recovered/Resolved]
